FAERS Safety Report 4843992-9 (Version None)
Quarter: 2005Q4

REPORT INFORMATION
  Report Type: 
  Country: None (occurrence: None)
  Receive Date: 20051202
  Receipt Date: 20050526
  Transmission Date: 20060501
  Serious: No
  Sender: FDA-Public Use
  Company Number: US-GLAXOSMITHKLINE-A0560290A

PATIENT
  Age: 71 Year
  Sex: Female

DRUGS (4)
  1. AUGMENTIN XR [Suspect]
     Indication: SINUSITIS
     Dosage: 2TAB TWICE PER DAY
     Route: 048
     Dates: start: 20050405, end: 20050408
  2. LIPITOR [Concomitant]
  3. CIPROFLOXACIN [Concomitant]
     Dosage: 500MG TWICE PER DAY
     Route: 048
  4. FLUCONAZOLE [Concomitant]
     Dosage: 150MG PER DAY
     Route: 048

REACTIONS (6)
  - DIARRHOEA [None]
  - DISCOMFORT [None]
  - NAUSEA [None]
  - PAIN [None]
  - STOMACH DISCOMFORT [None]
  - URINARY TRACT INFECTION [None]
